FAERS Safety Report 8455397-2 (Version None)
Quarter: 2012Q2

REPORT INFORMATION
  Report Type: 
  Country: None (occurrence: None)
  Receive Date: 20120621
  Receipt Date: 20120613
  Transmission Date: 20120825
  Serious: Yes (Hospitalization, Other)
  Sender: FDA-Public Use
  Company Number: US-JNJFOC-20120606693

PATIENT
  Sex: Female

DRUGS (5)
  1. LEVAQUIN [Suspect]
     Route: 065
  2. PENICILLIN [Interacting]
     Indication: TOOTH EXTRACTION
     Route: 065
  3. LEVAQUIN [Suspect]
     Indication: PRODUCT USED FOR UNKNOWN INDICATION
     Dosage: WHILE IN HOSPITAL
     Route: 065
  4. HERBAL MEDICATIONS NOS [Concomitant]
     Route: 065
  5. MAGNESIUM [Concomitant]
     Indication: PRODUCT USED FOR UNKNOWN INDICATION
     Route: 065

REACTIONS (9)
  - EOSINOPHIL COUNT ABNORMAL [None]
  - DRUG INTERACTION [None]
  - TOOTH EXTRACTION [None]
  - ORAL NEOPLASM [None]
  - LIMB INJURY [None]
  - SYNCOPE [None]
  - TENDON RUPTURE [None]
  - ELECTROCARDIOGRAM QT INTERVAL ABNORMAL [None]
  - ADVERSE EVENT [None]
